FAERS Safety Report 10519703 (Version 2)
Quarter: 2014Q4

REPORT INFORMATION
  Report Type: Spontaneous
  Country: AT (occurrence: AT)
  Receive Date: 20141015
  Receipt Date: 20141015
  Transmission Date: 20150528
  Serious: Yes (Hospitalization, Other)
  Sender: FDA-Public Use
  Company Number: AT-PFIZER INC-2011281818

PATIENT
  Age: 47 Year
  Sex: Female

DRUGS (14)
  1. MYCOSTATIN [Concomitant]
     Active Substance: NYSTATIN
     Dosage: 4 ML, 3X/DAY
  2. KALIORAL [Concomitant]
     Dosage: UNK
  3. SODIUM CHLORIDE. [Concomitant]
     Active Substance: SODIUM CHLORIDE
     Dosage: 500 ML, UNK
  4. TEPILTA [Concomitant]
     Active Substance: ALUMINUM HYDROXIDE\MAGNESIUM OXIDE\OXETHAZAINE
     Dosage: UNK
  5. TARDYFERON [Concomitant]
     Active Substance: FERROUS SULFATE\FOLIC ACID
     Dosage: UNK
  6. MEXALEN [Concomitant]
     Active Substance: LUBIPROSTONE
     Dosage: 500 MG, AS NEEDED
  7. VIBRAVENOUS [Suspect]
     Active Substance: DOXYCYCLINE HYCLATE
     Indication: POST VIRAL FATIGUE SYNDROME
     Dosage: 100 MG, 2X/DAY
     Route: 042
     Dates: start: 201207
  8. LEXOTANIL [Concomitant]
     Active Substance: BROMAZEPAM
     Dosage: 3 MG, AS NEEDED
  9. ULCOGANT [Concomitant]
     Active Substance: SUCRALFATE
     Dosage: 1.0 G, 3X/DAY
  10. VITAMIN D3 [Concomitant]
     Active Substance: CHOLECALCIFEROL
     Dosage: 400 IU, 1X/DAY
  11. MULTI VITAMINS + MINERALS [Concomitant]
     Dosage: UNK
  12. INDERAL [Concomitant]
     Active Substance: PROPRANOLOL HYDROCHLORIDE
     Dosage: 2.5 MG, 2X/DAY
  13. VIBRAVENOUS [Suspect]
     Active Substance: DOXYCYCLINE HYCLATE
     Indication: CHRONIC FATIGUE SYNDROME
     Dosage: 100 MG, 1X/DAY
     Route: 042
  14. LOESFERRON ^KABI-VITRUM^ [Concomitant]
     Dosage: UNK

REACTIONS (13)
  - Arrhythmia [Unknown]
  - Lip swelling [Unknown]
  - General physical health deterioration [Unknown]
  - Drug ineffective for unapproved indication [Unknown]
  - Fatigue [Unknown]
  - Oral discomfort [Unknown]
  - Sleep disorder [Unknown]
  - Palpitations [Unknown]
  - Blood lactate dehydrogenase increased [Recovering/Resolving]
  - Extrasystoles [Unknown]
  - Visual impairment [Unknown]
  - Blepharitis [Unknown]
  - Anxiety [Unknown]

NARRATIVE: CASE EVENT DATE: 2011
